FAERS Safety Report 7201224-0 (Version None)
Quarter: 2010Q4

REPORT INFORMATION
  Report Type: 
  Country: None (occurrence: None)
  Receive Date: 20101229
  Receipt Date: 20101217
  Transmission Date: 20110411
  Serious: Yes (Hospitalization, Other)
  Sender: FDA-Public Use
  Company Number: US-ELI_LILLY_AND_COMPANY-US201012001997

PATIENT
  Sex: Male

DRUGS (9)
  1. FORTEO [Suspect]
     Indication: OSTEOPOROSIS
     Dosage: 20 UG, DAILY (1/D)
     Route: 065
     Dates: start: 20100701
  2. POTASSIUM CHLORIDE [Concomitant]
     Dosage: 20 MEQ, DAILY (1/D)
     Route: 048
  3. COREG CR [Concomitant]
     Dosage: 40 MG, DAILY (1/D)
  4. ADVAIR [Concomitant]
     Dosage: UNK, 250/50, 2/D
  5. PREDNISONE [Concomitant]
     Dosage: 15 MG, DAILY (1/D)
  6. DIOVAN [Concomitant]
     Dosage: 320 MG, DAILY (1/D)
  7. KLOR-CON [Concomitant]
     Dosage: 10 MEQ, DAILY (1/D)
  8. TESTOSTERONE [Concomitant]
     Dosage: 1 D/F, OTHER (EVERY TWO WEEKS)
  9. WARFARIN [Concomitant]
     Dosage: 1 MG, DAILY (1/D)

REACTIONS (10)
  - ARTHRITIS [None]
  - BACK PAIN [None]
  - GENERALISED OEDEMA [None]
  - MALAISE [None]
  - MUSCULAR WEAKNESS [None]
  - OEDEMA PERIPHERAL [None]
  - PULMONARY EMBOLISM [None]
  - SHOULDER ARTHROPLASTY [None]
  - SINUSITIS [None]
  - THROMBOSIS [None]
